FAERS Safety Report 9156945 (Version 14)
Quarter: 2016Q3

REPORT INFORMATION
  Report Type: Report from Study
  Country: CA (occurrence: CA)
  Receive Date: 20130312
  Receipt Date: 20160815
  Transmission Date: 20161109
  Serious: Yes (Other)
  Sender: FDA-Public Use
  Company Number: PHHY2012CA089789

PATIENT
  Age: 29 Year
  Sex: Female

DRUGS (2)
  1. TASIGNA [Suspect]
     Active Substance: NILOTINIB
     Indication: CHRONIC MYELOID LEUKAEMIA
     Dosage: 300 MG, BID
     Route: 048
     Dates: start: 20120919
  2. AVELOX [Suspect]
     Active Substance: MOXIFLOXACIN HYDROCHLORIDE
     Indication: LOWER RESPIRATORY TRACT INFECTION
     Route: 065

REACTIONS (43)
  - Dental caries [Unknown]
  - Tooth discolouration [Unknown]
  - Menstruation irregular [Unknown]
  - Mouth swelling [Unknown]
  - White blood cell count abnormal [Not Recovered/Not Resolved]
  - Fatigue [Not Recovered/Not Resolved]
  - Pain in extremity [Not Recovered/Not Resolved]
  - Paraesthesia [Not Recovered/Not Resolved]
  - Hypersomnia [Unknown]
  - Pain [Not Recovered/Not Resolved]
  - Herpes zoster [Unknown]
  - Mass [Unknown]
  - Productive cough [Unknown]
  - Menstruation delayed [Unknown]
  - Middle insomnia [Unknown]
  - Appetite disorder [Unknown]
  - Dyspnoea [Unknown]
  - Lower respiratory tract infection [Recovered/Resolved]
  - Hypoaesthesia [Not Recovered/Not Resolved]
  - Bone marrow disorder [Unknown]
  - Bone pain [Unknown]
  - Pneumonia [Unknown]
  - Gait disturbance [Unknown]
  - Burning sensation [Unknown]
  - White blood cell count increased [Unknown]
  - Erythema nodosum [Recovering/Resolving]
  - Sleep terror [Unknown]
  - Oral infection [Unknown]
  - Lymphadenopathy [Not Recovered/Not Resolved]
  - Palpitations [Unknown]
  - Arthralgia [Unknown]
  - Peripheral swelling [Unknown]
  - Facial paralysis [Unknown]
  - Metrorrhagia [Unknown]
  - Rash [Recovering/Resolving]
  - Joint swelling [Unknown]
  - Haemoglobin decreased [Unknown]
  - Swollen tongue [Unknown]
  - Gingival discolouration [Unknown]
  - Oxygen saturation increased [Unknown]
  - Erythema [Unknown]
  - Rash pruritic [Unknown]
  - Chest pain [Unknown]

NARRATIVE: CASE EVENT DATE: 20131114
